FAERS Safety Report 8059384-8 (Version None)
Quarter: 2012Q1

REPORT INFORMATION
  Report Type: 
  Country: None (occurrence: None)
  Receive Date: 20120112
  Receipt Date: 20120104
  Transmission Date: 20120608
  Serious: Yes (Other)
  Sender: FDA-Public Use
  Company Number: 1000026818

PATIENT
  Age: 65 Year
  Sex: Female

DRUGS (6)
  1. LEXAPRO [Suspect]
     Indication: DEPRESSION
     Dosage: 10 MG (10 MG, 1 IN 1 D)
     Dates: start: 20111001, end: 20111201
  2. LEXAPRO [Suspect]
     Indication: POST-TRAUMATIC STRESS DISORDER
     Dosage: 10 MG (10 MG, 1 IN 1 D)
     Dates: start: 20111001, end: 20111201
  3. TRAZOLAN (TRAZODONE HYDROCHLORIDE) (TRAZODONE HYDROCHLORIDE) [Concomitant]
  4. OMEPRAZOL (OMEPRAZOLE) (OMEPRAZOLE) [Concomitant]
  5. LEXAPRO [Suspect]
     Indication: POST-TRAUMATIC STRESS DISORDER
     Dosage: 5 MG (5 MG, 1 IN 1 D)
  6. LEXAPRO [Suspect]
     Indication: DEPRESSION
     Dosage: 5 MG (5 MG, 1 IN 1 D)

REACTIONS (11)
  - ANGINA PECTORIS [None]
  - EATING DISORDER [None]
  - HYPOGLYCAEMIA [None]
  - ABASIA [None]
  - RESTLESSNESS [None]
  - CHEST DISCOMFORT [None]
  - WEIGHT DECREASED [None]
  - VOMITING [None]
  - PAIN IN EXTREMITY [None]
  - ABDOMINAL PAIN UPPER [None]
  - NAUSEA [None]
